FAERS Safety Report 7963716-6 (Version None)
Quarter: 2011Q4

REPORT INFORMATION
  Report Type: 
  Country: None (occurrence: None)
  Receive Date: 20111208
  Receipt Date: 20111028
  Transmission Date: 20120403
  Serious: No
  Sender: FDA-Public Use
  Company Number: US-BAYER-2011-106176

PATIENT
  Sex: Male

DRUGS (2)
  1. ACETYLSALICYLIC ACID SRT [Concomitant]
  2. ALEVE (CAPLET) [Suspect]
     Indication: LIMB OPERATION
     Dosage: 2 DF, BID
     Route: 048
     Dates: start: 20111021

REACTIONS (1)
  - NO ADVERSE EVENT [None]
